FAERS Safety Report 7205788-2 (Version None)
Quarter: 2010Q4

REPORT INFORMATION
  Report Type: 
  Country: None (occurrence: None)
  Receive Date: 20101231
  Receipt Date: 20101227
  Transmission Date: 20110411
  Serious: Yes (Hospitalization)
  Sender: FDA-Public Use
  Company Number: US-PFIZER INC-US-WYE-H13105510

PATIENT
  Sex: Female
  Weight: 105.5 kg

DRUGS (7)
  1. TORISEL [Suspect]
     Indication: RENAL CELL CARCINOMA
     Dosage: 25.0 MG, WEEKLY
     Route: 042
     Dates: start: 20091201, end: 20100112
  2. GLYBURIDE [Concomitant]
     Indication: DIABETES MELLITUS
     Dosage: UNK
     Route: 065
  3. VALSARTAN [Concomitant]
     Indication: HYPERTENSION
     Dosage: UNK
     Route: 065
  4. ATENOLOL [Concomitant]
     Dosage: UNK
     Route: 065
     Dates: start: 20091001
  5. POTASSIUM [Concomitant]
  6. DARVOCET-N 100 [Concomitant]
     Dosage: UNK
     Route: 065
     Dates: start: 20090201
  7. SYNTHROID [Concomitant]
     Dosage: UNK
     Route: 065
     Dates: start: 20080501

REACTIONS (4)
  - CEREBROVASCULAR ACCIDENT [None]
  - CONVULSION [None]
  - HYPOKALAEMIA [None]
  - PANCYTOPENIA [None]
